FAERS Safety Report 23587295 (Version 2)
Quarter: 2024Q2

REPORT INFORMATION
  Report Type: Spontaneous
  Country: CH (occurrence: CH)
  Receive Date: 20240301
  Receipt Date: 20240528
  Transmission Date: 20240716
  Serious: Yes (Other)
  Sender: FDA-Public Use
  Company Number: CH-ELI_LILLY_AND_COMPANY-CH202402012193

PATIENT
  Age: 63 Year
  Sex: Female

DRUGS (9)
  1. OLUMIANT [Suspect]
     Active Substance: BARICITINIB
     Indication: Rheumatoid arthritis
     Dosage: 4 MG, DAILY
     Route: 048
     Dates: start: 201901, end: 20190425
  2. OLUMIANT [Suspect]
     Active Substance: BARICITINIB
     Dosage: 2 MG
     Route: 048
     Dates: start: 20190426
  3. TRESIBA [Concomitant]
     Active Substance: INSULIN DEGLUDEC
     Indication: Diabetes mellitus
     Dosage: 100 E/ML 0-0-22-0 I.E.
     Route: 058
  4. ROSUVASTATIN CALCIUM [Concomitant]
     Active Substance: ROSUVASTATIN CALCIUM
     Indication: Product used for unknown indication
     Dosage: 10 MG, DAILY
     Route: 048
  5. METFORMIN [Concomitant]
     Active Substance: METFORMIN HYDROCHLORIDE
     Indication: Diabetes mellitus
     Dosage: 1000 MG 1-0-1-0
     Route: 048
  6. VALSARTAN [Concomitant]
     Active Substance: VALSARTAN
     Indication: Product used for unknown indication
     Dosage: 80 MG 1/2-0-0-0
     Route: 048
  7. OZEMPIC [Concomitant]
     Active Substance: SEMAGLUTIDE
     Indication: Diabetes mellitus
     Dosage: 2 MG/1.5ML 1X PER WEEK
     Route: 058
  8. RHEUMALIX [Concomitant]
     Indication: Product used for unknown indication
     Dosage: UNK, PRN
     Route: 003
  9. METAMIZOLE [Concomitant]
     Active Substance: METAMIZOLE
     Indication: Product used for unknown indication
     Dosage: 500 MG, PRN
     Route: 048

REACTIONS (7)
  - Portal vein thrombosis [Unknown]
  - Hepatic steatosis [Unknown]
  - Transaminases increased [Recovered/Resolved]
  - Osteoarthritis [Unknown]
  - Osteopenia [Unknown]
  - Dyspepsia [Unknown]
  - Paraesthesia [Unknown]

NARRATIVE: CASE EVENT DATE: 20210601
